FAERS Safety Report 21962640 (Version 1)
Quarter: 2023Q1

REPORT INFORMATION
  Report Type: Report from Study
  Country: US (occurrence: US)
  Receive Date: 20230207
  Receipt Date: 20230207
  Transmission Date: 20230418
  Serious: Yes (Other)
  Sender: FDA-Public Use
  Company Number: US-BAYER-2023A011868

PATIENT
  Age: 65 Year
  Sex: Female

DRUGS (1)
  1. STIVARGA [Suspect]
     Active Substance: REGORAFENIB
     Indication: Gastrointestinal stromal tumour
     Dosage: 80 MG, QD ON DAYS 1-21 OF A 28 DAY CYCLE
     Route: 048
     Dates: start: 20221126

REACTIONS (9)
  - Neuropathy peripheral [Unknown]
  - Paraesthesia [Unknown]
  - Burning sensation [Unknown]
  - Pain in extremity [Unknown]
  - Mobility decreased [None]
  - Balance disorder [None]
  - Hair texture abnormal [None]
  - Onychomalacia [None]
  - Off label use [None]

NARRATIVE: CASE EVENT DATE: 20221126
